FAERS Safety Report 4908402-1 (Version None)
Quarter: 2006Q1

REPORT INFORMATION
  Report Type: 
  Country: None (occurrence: None)
  Receive Date: 20060210
  Receipt Date: 20040302
  Transmission Date: 20060701
  Serious: No
  Sender: FDA-Public Use
  Company Number: US-GLAXOSMITHKLINE-A0500854A

PATIENT
  Age: 71 Year
  Sex: Female

DRUGS (1)
  1. PAXIL CR [Suspect]
     Indication: DEPRESSION
     Dosage: 37.5MG TWICE PER DAY
     Route: 048
     Dates: start: 20030801

REACTIONS (5)
  - ALOPECIA [None]
  - HEADACHE [None]
  - HYPERHIDROSIS [None]
  - TREMOR [None]
  - WEIGHT INCREASED [None]
